FAERS Safety Report 17244814 (Version 3)
Quarter: 2020Q1

REPORT INFORMATION
  Report Type: Spontaneous
  Country: PT (occurrence: PT)
  Receive Date: 20200107
  Receipt Date: 20200116
  Transmission Date: 20200409
  Serious: Yes (Other)
  Sender: FDA-Public Use
  Company Number: PT-AUROBINDO-AUR-APL-2019-059718

PATIENT
  Age: 50 Year
  Sex: Female

DRUGS (5)
  1. QUETIAPINE FILM-COATED TABLET [Suspect]
     Active Substance: QUETIAPINE
     Indication: DEPRESSION
     Dosage: 250 MILLIGRAM, ONCE A DAY
     Route: 048
  2. QUETIAPINE FILM-COATED TABLET [Interacting]
     Active Substance: QUETIAPINE
     Dosage: DOSES BETWEEN 100 AND 250 MG, ONCE A DAY
     Route: 065
  3. QUETIAPINE FILM-COATED TABLET [Interacting]
     Active Substance: QUETIAPINE
     Dosage: 50 MILLIGRAM, ONCE A DAY
     Route: 048
  4. QUETIAPINE FILM-COATED TABLET [Interacting]
     Active Substance: QUETIAPINE
     Dosage: 100 MILLIGRAM, ONCE A DAY
     Route: 065
  5. ESCITALOPRAM [Interacting]
     Active Substance: ESCITALOPRAM OXALATE
     Indication: DEPRESSION
     Dosage: 20 MILLIGRAM, BED TIME
     Route: 065

REACTIONS (2)
  - Restless legs syndrome [Recovered/Resolved]
  - Drug interaction [Recovered/Resolved]
